FAERS Safety Report 9250547 (Version 1)
Quarter: 2013Q1

REPORT INFORMATION
  Report Type: Spontaneous
  Country: US (occurrence: None)
  Receive Date: 20130305
  Receipt Date: 20130305
  Transmission Date: 20140127
  Serious: Yes (Other)
  Sender: FDA-Public Use
  Company Number: 163-21880-12061264 (0)

PATIENT
  Age: 49 Year
  Sex: Male
  Weight: 61.24 kg

DRUGS (4)
  1. REVLIMID [Suspect]
     Indication: PLASMA CELL MYELOMA
     Route: 048
     Dates: start: 200811
  2. ASPIRIN (ACETYLSALICYLIC ACID) [Concomitant]
  3. VITAMINS [Concomitant]
  4. TRAMADOL (TRAMADOL) [Concomitant]

REACTIONS (1)
  - Cerebrovascular accident [None]
